FAERS Safety Report 6858484-5 (Version None)
Quarter: 2010Q3

REPORT INFORMATION
  Report Type: 
  Country: None (occurrence: None)
  Receive Date: 20100719
  Receipt Date: 20080209
  Transmission Date: 20110219
  Serious: No
  Sender: FDA-Public Use
  Company Number: US-PFIZER INC-2008013370

PATIENT
  Sex: Female
  Weight: 68 kg

DRUGS (5)
  1. CHANTIX [Suspect]
     Indication: SMOKING CESSATION THERAPY
     Dates: start: 20080101, end: 20080206
  2. PROTONIX [Concomitant]
  3. METOPROLOL [Concomitant]
  4. LEXAPRO [Concomitant]
  5. MAGNESIUM [Concomitant]

REACTIONS (2)
  - DRUG INEFFECTIVE [None]
  - VOMITING [None]
